FAERS Safety Report 13617216 (Version 1)
Quarter: 2017Q2

REPORT INFORMATION
  Report Type: Spontaneous
  Country: US (occurrence: US)
  Receive Date: 20170606
  Receipt Date: 20170606
  Transmission Date: 20170830
  Serious: No
  Sender: FDA-Public Use
  Company Number: US-SA-2017SA067517

PATIENT
  Age: 63 Year
  Sex: Female

DRUGS (4)
  1. LANTUS SOLOSTAR [Suspect]
     Active Substance: INSULIN GLARGINE
     Indication: TYPE 2 DIABETES MELLITUS
     Dosage: 40 UNITS, 20?UNITS,MORNING,?EVENING
     Route: 065
     Dates: start: 2007
  2. TANZEUM [Concomitant]
     Active Substance: ALBIGLUTIDE
  3. SOLOSTAR [Concomitant]
     Active Substance: DEVICE
     Dates: start: 2007
  4. NOVOLOG [Concomitant]
     Active Substance: INSULIN ASPART

REACTIONS (3)
  - Condition aggravated [Not Recovered/Not Resolved]
  - Product use issue [Unknown]
  - Visual impairment [Not Recovered/Not Resolved]
